FAERS Safety Report 7562914-3 (Version None)
Quarter: 2011Q2

REPORT INFORMATION
  Report Type: 
  Country: None (occurrence: None)
  Receive Date: 20110615
  Receipt Date: 20110601
  Transmission Date: 20111010
  Serious: Yes (Death)
  Sender: FDA-Public Use
  Company Number: JPI-P-014778

PATIENT
  Age: 62 Year
  Sex: Male

DRUGS (8)
  1. FUROSEMIDE [Concomitant]
  2. IBUPROFEN [Concomitant]
  3. ENALAPRIL MALEATE [Concomitant]
  4. GLIPIZIDE [Concomitant]
  5. XYREM [Suspect]
     Indication: CATAPLEXY
     Dosage: 4.5 GM (2.25 GM,2 IN 1 D),ORAL ; 9 GM (4.5 GM,2 IN 1 D),ORAL
     Route: 048
     Dates: start: 20030117, end: 20030206
  6. XYREM [Suspect]
     Indication: CATAPLEXY
     Dosage: 4.5 GM (2.25 GM,2 IN 1 D),ORAL ; 9 GM (4.5 GM,2 IN 1 D),ORAL
     Route: 048
     Dates: start: 20030207, end: 20061025
  7. ATORVASTATIN CALCIUM [Concomitant]
  8. METOPROLOL TARTRATE [Concomitant]

REACTIONS (1)
  - CEREBROVASCULAR ACCIDENT [None]
